FAERS Safety Report 11525680 (Version 2)
Quarter: 2015Q4

REPORT INFORMATION
  Report Type: Report from Study
  Country: BE (occurrence: BE)
  Receive Date: 20150918
  Receipt Date: 20151002
  Transmission Date: 20160304
  Serious: Yes (Hospitalization, Disabling)
  Sender: FDA-Public Use
  Company Number: BE-ABBVIE-15P-013-1461823-00

PATIENT
  Age: 33 Year
  Sex: Male
  Weight: 67 kg

DRUGS (4)
  1. ALDACTAZINE [Concomitant]
     Active Substance: ALTHIAZIDE\SPIRONOLACTONE
     Indication: PROPHYLAXIS
  2. HUMIRA [Suspect]
     Active Substance: ADALIMUMAB
     Indication: CROHN^S DISEASE
     Route: 058
     Dates: start: 20150806, end: 20150902
  3. ALDACTAZINE [Concomitant]
     Active Substance: ALTHIAZIDE\SPIRONOLACTONE
     Indication: OEDEMA PERIPHERAL
     Dosage: 1 COMPRIME
     Route: 048
     Dates: start: 2013
  4. HUMIRA [Suspect]
     Active Substance: ADALIMUMAB
     Route: 058
     Dates: start: 20150916

REACTIONS (1)
  - Amnesia [Recovered/Resolved]

NARRATIVE: CASE EVENT DATE: 20150909
